FAERS Safety Report 15157002 (Version 3)
Quarter: 2018Q4

REPORT INFORMATION
  Report Type: Report from Study
  Country: None (occurrence: US)
  Receive Date: 20180718
  Receipt Date: 20181017
  Transmission Date: 20190204
  Serious: No
  Sender: FDA-Public Use
  Company Number: US-ABBVIE-18K-163-2416275-00

PATIENT
  Age: 69 Year
  Sex: Female
  Weight: 74.91 kg

DRUGS (4)
  1. HUMIRA [Suspect]
     Active Substance: ADALIMUMAB
     Indication: PSORIATIC ARTHROPATHY
     Route: 058
     Dates: start: 201707, end: 201807
  2. METHOTREXATE. [Suspect]
     Active Substance: METHOTREXATE
     Indication: PSORIASIS
     Route: 065
  3. FOLIC ACID. [Concomitant]
     Active Substance: FOLIC ACID
     Indication: PRODUCT USED FOR UNKNOWN INDICATION
  4. HUMIRA [Suspect]
     Active Substance: ADALIMUMAB
     Indication: PSORIASIS
     Route: 058
     Dates: start: 201807

REACTIONS (14)
  - Skin irritation [Not Recovered/Not Resolved]
  - Therapeutic response shortened [Recovering/Resolving]
  - Gait disturbance [Not Recovered/Not Resolved]
  - Insomnia [Recovering/Resolving]
  - Pruritus [Not Recovered/Not Resolved]
  - Sensitivity to weather change [Not Recovered/Not Resolved]
  - Hepatic enzyme abnormal [Recovering/Resolving]
  - Mobility decreased [Recovered/Resolved]
  - Stress [Recovered/Resolved]
  - Arthritis [Recovering/Resolving]
  - Skin hypertrophy [Unknown]
  - Pain of skin [Recovering/Resolving]
  - Psoriasis [Not Recovered/Not Resolved]
  - Erythema [Unknown]

NARRATIVE: CASE EVENT DATE: 2018
